FAERS Safety Report 7929890-2 (Version None)
Quarter: 2011Q4

REPORT INFORMATION
  Report Type: 
  Country: None (occurrence: None)
  Receive Date: 20111121
  Receipt Date: 20111115
  Transmission Date: 20120403
  Serious: No
  Sender: FDA-Public Use
  Company Number: US-PFIZER INC-2011280910

PATIENT
  Sex: Female

DRUGS (2)
  1. ACETYLSALICYLIC ACID SRT [Suspect]
     Dosage: UNK
  2. CLINDAMYCIN HCL [Suspect]
     Dosage: 150 MG, UNK

REACTIONS (1)
  - DYSPHAGIA [None]
